FAERS Safety Report 7605420-X (Version None)
Quarter: 2011Q3

REPORT INFORMATION
  Report Type: 
  Country: None (occurrence: None)
  Receive Date: 20110712
  Receipt Date: 20110712
  Transmission Date: 20111222
  Serious: Yes (Death, Life-Threatening, Hospitalization)
  Sender: FDA-Public Use
  Company Number: None

PATIENT
  Age: 63 Year
  Sex: Male
  Weight: 154.6 kg

DRUGS (1)
  1. VANCOMYCIN [Suspect]
     Indication: BACTERAEMIA
     Dosage: 1500 BID IV
     Route: 042
     Dates: start: 20101010, end: 20101116

REACTIONS (9)
  - CARDIO-RESPIRATORY ARREST [None]
  - ESCHERICHIA TEST POSITIVE [None]
  - RASH PRURITIC [None]
  - PSEUDOMONAS TEST POSITIVE [None]
  - WHITE BLOOD CELL COUNT INCREASED [None]
  - PULSELESS ELECTRICAL ACTIVITY [None]
  - HYPOXIA [None]
  - ASPIRATION [None]
  - LEUKOPENIA [None]
